FAERS Safety Report 24962158 (Version 2)
Quarter: 2025Q1

REPORT INFORMATION
  Report Type: Spontaneous
  Country: RO (occurrence: RO)
  Receive Date: 20250212
  Receipt Date: 20250219
  Transmission Date: 20250409
  Serious: Yes (Hospitalization, Other)
  Sender: MYLAN
  Company Number: RO-ZENTIVA-2025-ZT-027193

PATIENT
  Age: 52 Year
  Sex: Male

DRUGS (5)
  1. PANTOPRAZOLE [Suspect]
     Active Substance: PANTOPRAZOLE
     Indication: Hypertension
     Dosage: 20 MILLIGRAM, QD
     Route: 065
  2. CARVEDILOL [Suspect]
     Active Substance: CARVEDILOL
     Indication: Hypertension
     Dosage: 12.5 MILLIGRAM, QD
     Route: 065
  3. FUROSEMIDE\SPIRONOLACTONE [Suspect]
     Active Substance: FUROSEMIDE\SPIRONOLACTONE
     Indication: Hypertension
     Dosage: 50/20 MG PER DAY
     Route: 065
  4. RIFAXIMIN [Concomitant]
     Active Substance: RIFAXIMIN
     Route: 065
  5. URSODIOL [Concomitant]
     Active Substance: URSODIOL
     Route: 065

REACTIONS (5)
  - Subacute cutaneous lupus erythematosus [Recovered/Resolved]
  - Lupus-like syndrome [Unknown]
  - Skin hyperpigmentation [Recovering/Resolving]
  - Skin exfoliation [Recovered/Resolved]
  - Telangiectasia [Recovered/Resolved]
